FAERS Safety Report 20795719 (Version 1)
Quarter: 2022Q2

REPORT INFORMATION
  Report Type: Report from Study
  Country: BR (occurrence: BR)
  Receive Date: 20220506
  Receipt Date: 20220506
  Transmission Date: 20220720
  Serious: Yes (Other)
  Sender: FDA-Public Use
  Company Number: BR-JNJFOC-20220458716

PATIENT
  Age: 4 Decade
  Sex: Female
  Weight: 47.5 kg

DRUGS (2)
  1. INFLIXIMAB [Suspect]
     Active Substance: INFLIXIMAB
     Indication: Colitis
     Route: 042
     Dates: start: 20200827, end: 20220228
  2. INFLIXIMAB [Suspect]
     Active Substance: INFLIXIMAB
     Route: 042

REACTIONS (4)
  - Lupus-like syndrome [Unknown]
  - Drug level below therapeutic [Unknown]
  - Off label use [Unknown]
  - Product use issue [Unknown]
